FAERS Safety Report 4387940-7 (Version None)
Quarter: 2004Q2

REPORT INFORMATION
  Report Type: 
  Country: None (occurrence: None)
  Receive Date: 20040607
  Receipt Date: 20040112
  Transmission Date: 20050107
  Serious: Yes (Other)
  Sender: FDA-Public Use
  Company Number: 355932

PATIENT

DRUGS (2)
  1. ACCUTANE [Suspect]
     Dosage: ORAL
     Route: 048
     Dates: start: 19991214, end: 20000915
  2. ORAL CONTRACEPTIVE PILL [Concomitant]

REACTIONS (1)
  - ABORTION SPONTANEOUS [None]
